FAERS Safety Report 4303446-5 (Version None)
Quarter: 2004Q1

REPORT INFORMATION
  Report Type: 
  Country: None (occurrence: None)
  Receive Date: 20040223
  Receipt Date: 20040216
  Transmission Date: 20041129
  Serious: Yes (Hospitalization)
  Sender: FDA-Public Use
  Company Number: 2003-08-2133

PATIENT
  Sex: Male

DRUGS (15)
  1. INTRON A [Suspect]
     Indication: METASTATIC RENAL CELL CARCINOMA
     Dosage: 12-6 MIU SUBCUTANEOUS; SEE IMAGE
     Route: 058
     Dates: start: 20030804, end: 20030821
  2. INTRON A [Suspect]
     Indication: METASTATIC RENAL CELL CARCINOMA
     Dosage: 12-6 MIU SUBCUTANEOUS; SEE IMAGE
     Route: 058
     Dates: start: 20030823, end: 20030824
  3. INTRON A [Suspect]
     Indication: METASTATIC RENAL CELL CARCINOMA
     Dosage: 12-6 MIU SUBCUTANEOUS; SEE IMAGE
     Route: 058
     Dates: start: 20030804
  4. INTRON A [Suspect]
     Indication: METASTATIC RENAL CELL CARCINOMA
     Dosage: 12-6 MIU SUBCUTANEOUS; SEE IMAGE
     Route: 058
     Dates: start: 20030827
  5. INTERLEUKIN-2 INJECTABLE POWDER [Suspect]
     Indication: METASTATIC RENAL CELL CARCINOMA
     Dosage: 19.8-19.8 MIU SUBCUTANEOUS; SEE IMAGE
     Route: 058
     Dates: start: 20030806, end: 20030808
  6. INTERLEUKIN-2 INJECTABLE POWDER [Suspect]
     Indication: METASTATIC RENAL CELL CARCINOMA
     Dosage: 19.8-19.8 MIU SUBCUTANEOUS; SEE IMAGE
     Route: 058
     Dates: start: 20030806
  7. INTERLEUKIN-2 INJECTABLE POWDER [Suspect]
     Indication: METASTATIC RENAL CELL CARCINOMA
     Dosage: 19.8-19.8 MIU SUBCUTANEOUS; SEE IMAGE
     Route: 058
     Dates: start: 20030823
  8. FLUOROURACIL [Suspect]
     Indication: METASTATIC RENAL CELL CARCINOMA
     Dosage: 1500-750MG INTRAVENOUS; SEE IMAGE
     Route: 042
     Dates: start: 20030827
  9. ONDANSETRON HCL [Concomitant]
  10. PARACETAMOL [Concomitant]
  11. ATENOLOL [Concomitant]
  12. WARFARIN SODIUM [Concomitant]
  13. DOXAZOSIN MESYLATE [Concomitant]
  14. CANDESARTAN CILEXETIL [Concomitant]
  15. ZOPICLONE [Concomitant]

REACTIONS (9)
  - ATRIAL FIBRILLATION [None]
  - BRADYCARDIA [None]
  - CHEST DISCOMFORT [None]
  - DYSPNOEA [None]
  - HYPERHIDROSIS [None]
  - PALLOR [None]
  - PULMONARY CONGESTION [None]
  - PULMONARY OEDEMA [None]
  - URINE OUTPUT DECREASED [None]
